FAERS Safety Report 4577486-5 (Version None)
Quarter: 2005Q1

REPORT INFORMATION
  Report Type: 
  Country: None (occurrence: None)
  Receive Date: 20050208
  Receipt Date: 20041119
  Transmission Date: 20050727
  Serious: Yes (Death)
  Sender: FDA-Public Use
  Company Number: 2004098177

PATIENT
  Age: 61 Year
  Sex: Female

DRUGS (5)
  1. CELEBREX [Suspect]
     Indication: ILL-DEFINED DISORDER
     Dosage: 100 MG (100 MG, 1 IN 1 D), ORAL
     Route: 048
  2. ROFECOXIB [Suspect]
     Indication: ILL-DEFINED DISORDER
     Dosage: 25 MG (25 MG, 1 IN 1 D), ORAL
     Route: 048
  3. ACETYLSALICYLIC ACID SRT [Concomitant]
  4. LANSOPRAZOLE [Concomitant]
  5. ARTHROTEC [Concomitant]

REACTIONS (1)
  - MYOCARDIAL INFARCTION [None]
